FAERS Safety Report 18568003 (Version 2)
Quarter: 2021Q1

REPORT INFORMATION
  Report Type: Spontaneous
  Country: GB (occurrence: GB)
  Receive Date: 20201202
  Receipt Date: 20210122
  Transmission Date: 20210419
  Serious: Yes (Hospitalization, Other)
  Sender: FDA-Public Use
  Company Number: GB-PFIZER INC-2020467038

PATIENT
  Age: 36 Year
  Sex: Female

DRUGS (1)
  1. METHOTREXATE SODIUM. [Suspect]
     Active Substance: METHOTREXATE SODIUM
     Indication: ECTOPIC PREGNANCY
     Dosage: ONE?OFF
     Route: 048
     Dates: start: 20201028, end: 20201028

REACTIONS (7)
  - Maternal exposure during pregnancy [Unknown]
  - Blood bilirubin increased [Unknown]
  - Off label use [Unknown]
  - Blood alkaline phosphatase increased [Unknown]
  - Abdominal pain upper [Unknown]
  - Liver injury [Unknown]
  - Alanine aminotransferase increased [Unknown]

NARRATIVE: CASE EVENT DATE: 202010
